FAERS Safety Report 12201540 (Version 1)
Quarter: 2016Q1

REPORT INFORMATION
  Report Type: Spontaneous
  Country: US (occurrence: US)
  Receive Date: 20160322
  Receipt Date: 20160322
  Transmission Date: 20160526
  Serious: No
  Sender: FDA-Public Use
  Company Number: US-SA-2015SA172173

PATIENT
  Age: 77 Year
  Sex: Male

DRUGS (2)
  1. NASACORT ALLERGY 24HR [Suspect]
     Active Substance: TRIAMCINOLONE ACETONIDE
     Indication: MULTIPLE ALLERGIES
     Dosage: TWO SPRAYS PER NOSTRIL PER DAY?START DATE: ABOUT 3-4MONTHS AGO
     Route: 045
  2. NASACORT ALLERGY 24HR [Suspect]
     Active Substance: TRIAMCINOLONE ACETONIDE
     Indication: MULTIPLE ALLERGIES
     Dosage: ONE SPRAYS PER NOSTRIL PER DAY?START DATE: ABOUT 1-2 WEEKS AGO
     Route: 045

REACTIONS (2)
  - Gait disturbance [Recovered/Resolved]
  - Dizziness [Recovered/Resolved]
